FAERS Safety Report 8921645 (Version 2)
Quarter: 2012Q4

REPORT INFORMATION
  Report Type: 
  Country: US (occurrence: US)
  Receive Date: 20121122
  Receipt Date: 20121203
  Transmission Date: 20130627
  Serious: No
  Sender: FDA-Public Use
  Company Number: US-BIOGENIDEC-2012BI054330

PATIENT
  Sex: Female

DRUGS (2)
  1. TYSABRI [Suspect]
     Indication: MULTIPLE SCLEROSIS
     Route: 042
     Dates: start: 20100817
  2. AVONEX [Concomitant]
     Indication: MULTIPLE SCLEROSIS
     Route: 030

REACTIONS (10)
  - Oral pain [Unknown]
  - Glossodynia [Unknown]
  - Gingival pain [Unknown]
  - Weight decreased [Not Recovered/Not Resolved]
  - Myalgia [Unknown]
  - Blood cholesterol increased [Not Recovered/Not Resolved]
  - Pain in extremity [Unknown]
  - Sinusitis [Unknown]
  - Candidiasis [Unknown]
  - Oropharyngeal pain [Recovered/Resolved]
